FAERS Safety Report 7485908-5 (Version None)
Quarter: 2011Q2

REPORT INFORMATION
  Report Type: 
  Country: None (occurrence: None)
  Receive Date: 20110517
  Receipt Date: 20110223
  Transmission Date: 20111010
  Serious: Yes (Death, Other)
  Sender: FDA-Public Use
  Company Number: US-BAYER-2011-004990

PATIENT
  Age: 52 Year
  Sex: Male

DRUGS (6)
  1. NEXAVAR [Suspect]
     Indication: HEPATIC NEOPLASM MALIGNANT
     Dosage: 200 MG, BID
     Route: 048
     Dates: start: 20090601, end: 20101201
  2. LIPITOR [Concomitant]
     Dosage: 10 MG, UNK
  3. GLIPIZIDE [Concomitant]
  4. ATENOLOL [Concomitant]
     Dosage: 100 MG, UNK
  5. JANUVIA [Concomitant]
     Dosage: 50 MG, UNK
  6. AVANDIA [Concomitant]
     Dosage: 4 MG, UNK

REACTIONS (2)
  - DEHYDRATION [None]
  - RENAL FAILURE [None]
